FAERS Safety Report 7883063-0 (Version None)
Quarter: 2011Q4

REPORT INFORMATION
  Report Type: 
  Country: None (occurrence: None)
  Receive Date: 20111102
  Receipt Date: 20111024
  Transmission Date: 20120403
  Serious: No
  Sender: FDA-Public Use
  Company Number: US-BIOGENIDEC-2010BI006537

PATIENT
  Age: 30 Year
  Sex: Female

DRUGS (5)
  1. TYSABRI [Suspect]
     Indication: MULTIPLE SCLEROSIS
     Route: 042
     Dates: start: 20071119
  2. AMPYRA [Concomitant]
     Indication: MUSCLE SPASTICITY
     Dates: start: 20090101, end: 20091026
  3. CLARITIN [Concomitant]
     Indication: PREMEDICATION
     Route: 048
  4. ZANTAC [Concomitant]
     Indication: PREMEDICATION
     Route: 042
  5. BENADRYL [Concomitant]
     Indication: PREMEDICATION
     Route: 042

REACTIONS (3)
  - FEELING DRUNK [None]
  - HYPERSENSITIVITY [None]
  - FEELING COLD [None]
